FAERS Safety Report 6762910-X (Version None)
Quarter: 2010Q2

REPORT INFORMATION
  Report Type: 
  Country: None (occurrence: None)
  Receive Date: 20100609
  Receipt Date: 20100604
  Transmission Date: 20101027
  Serious: Yes (Hospitalization)
  Sender: FDA-Public Use
  Company Number: IT-ASTRAZENECA-2010SE25878

PATIENT
  Age: 46 Year
  Sex: Male

DRUGS (2)
  1. ZESTRIL [Suspect]
     Indication: HYPERTENSION
     Route: 048
     Dates: start: 20100101, end: 20100509
  2. CARVEDILOL [Concomitant]
     Indication: HYPERTENSION
     Dates: start: 20100101, end: 20100509

REACTIONS (1)
  - PALATAL OEDEMA [None]
